FAERS Safety Report 17399092 (Version 1)
Quarter: 2020Q1

REPORT INFORMATION
  Report Type: Report from Study
  Country: JP (occurrence: JP)
  Receive Date: 20200210
  Receipt Date: 20200210
  Transmission Date: 20200409
  Serious: Yes (Hospitalization, Other)
  Sender: FDA-Public Use
  Company Number: JP-AMGEN-JPNCT2018113215

PATIENT
  Age: 76 Year
  Sex: Male

DRUGS (33)
  1. CRESTOR OD [Concomitant]
     Active Substance: ROSUVASTATIN CALCIUM
     Dosage: 2.5 MG
     Route: 048
  2. VALSARTAN. [Concomitant]
     Active Substance: VALSARTAN
     Indication: HYPERTENSION
     Dosage: 40 MG
     Route: 048
  3. VALSARTAN. [Concomitant]
     Active Substance: VALSARTAN
     Dosage: 40 MG
     Route: 048
  4. CEFAZOLIN SODIUM. [Concomitant]
     Active Substance: CEFAZOLIN SODIUM
     Dosage: 2 G
     Route: 065
     Dates: start: 20180227, end: 20180301
  5. SEISHOKU [Concomitant]
     Active Substance: SODIUM CHLORIDE
     Dosage: 100 ML
     Route: 065
     Dates: start: 20180227, end: 20180307
  6. TRANSAMIN [Concomitant]
     Active Substance: TRANEXAMIC ACID
     Dosage: 1 GRAM
     Route: 065
     Dates: start: 20180227, end: 20180307
  7. BAYASPIRIN [Concomitant]
     Active Substance: ASPIRIN
     Dosage: 100 MG
     Route: 048
  8. BAYASPIRIN [Concomitant]
     Active Substance: ASPIRIN
     Dosage: 100 MG
     Route: 048
  9. CEFCAPENE PIVOXIL HYDROCHLORIDE [Concomitant]
     Active Substance: CEFCAPENE PIVOXIL HYDROCHLORIDE
     Dosage: 300 MG
     Route: 048
     Dates: start: 20180126, end: 20180128
  10. LOXOPROFEN SODIUM [Concomitant]
     Active Substance: LOXOPROFEN SODIUM
     Dosage: 180 MG
     Route: 048
     Dates: start: 20180224, end: 20180224
  11. DARBEPOETIN ALFA [Suspect]
     Active Substance: DARBEPOETIN ALFA
     Dosage: 240 MICROGRAM, QWK
     Route: 065
     Dates: start: 20181009, end: 20190102
  12. DIART [Concomitant]
     Active Substance: AZOSEMIDE
     Dosage: 15 MG
     Route: 048
  13. CRESTOR OD [Concomitant]
     Active Substance: ROSUVASTATIN CALCIUM
     Indication: DYSLIPIDAEMIA
     Dosage: 2.5 MG
     Route: 048
  14. CARVEDILOL. [Concomitant]
     Active Substance: CARVEDILOL
     Indication: CARDIAC FAILURE CHRONIC
     Dosage: 7.5 MG
     Route: 048
  15. CARVEDILOL. [Concomitant]
     Active Substance: CARVEDILOL
     Dosage: 7.5 MG
     Route: 048
  16. CARVEDILOL. [Concomitant]
     Active Substance: CARVEDILOL
     Dosage: 7.5 MG
     Route: 048
  17. REBAMIPIDE [Concomitant]
     Active Substance: REBAMIPIDE
     Dosage: 300 MG
     Route: 048
     Dates: start: 20180224, end: 20180224
  18. DAIKENCHUTO [Concomitant]
     Active Substance: HERBALS
     Indication: CONSTIPATION
     Dosage: 7.5 G
     Route: 048
     Dates: start: 20180227, end: 20180319
  19. FEBURIC [Concomitant]
     Active Substance: FEBUXOSTAT
     Dosage: 20 MILLIGRAM
     Route: 048
     Dates: start: 20190124, end: 20190130
  20. LANSOPRAZOLE. [Concomitant]
     Active Substance: LANSOPRAZOLE
     Dosage: 15 MG
     Route: 048
     Dates: start: 20190124
  21. BAKTAR [Concomitant]
     Active Substance: SULFAMETHOXAZOLE\TRIMETHOPRIM
     Dosage: UNK
     Route: 048
     Dates: start: 20190124
  22. CEFTRIAXONE SODIUM. [Concomitant]
     Active Substance: CEFTRIAXONE SODIUM
     Dosage: UNK
     Route: 065
     Dates: start: 20180120, end: 20180126
  23. DIART [Concomitant]
     Active Substance: AZOSEMIDE
     Dosage: 15 MG
     Route: 048
  24. TAZOPIPE [Concomitant]
     Active Substance: PIPERACILLIN SODIUM\TAZOBACTAM SODIUM
     Dosage: 13.5 G
     Route: 065
     Dates: start: 20180302, end: 20180309
  25. BAYASPIRIN [Concomitant]
     Active Substance: ASPIRIN
     Indication: CAROTID ARTERY STENOSIS
     Dosage: 100 MILLIGRAM
     Route: 048
  26. CRESTOR OD [Concomitant]
     Active Substance: ROSUVASTATIN CALCIUM
     Dosage: 2.5 MG
     Route: 048
  27. FLUCONAZOLE. [Concomitant]
     Active Substance: FLUCONAZOLE
     Dosage: 200 MG
     Route: 048
     Dates: start: 20190124
  28. ADONA [Concomitant]
     Dosage: 100 MG
     Route: 065
     Dates: start: 20180227, end: 20180307
  29. VALSARTAN. [Concomitant]
     Active Substance: VALSARTAN
     Dosage: 40 MG
     Route: 048
  30. CEFDINIR. [Concomitant]
     Active Substance: CEFDINIR
     Dosage: 300 MG
     Route: 048
     Dates: start: 20180224, end: 20180226
  31. DARBEPOETIN ALFA [Suspect]
     Active Substance: DARBEPOETIN ALFA
     Indication: MYELODYSPLASTIC SYNDROME
     Dosage: 240 MICROGRAM, QWK
     Route: 065
     Dates: start: 20170508, end: 20180925
  32. DIART [Concomitant]
     Active Substance: AZOSEMIDE
     Indication: CARDIAC FAILURE CHRONIC
     Dosage: 15 MG
     Route: 048
  33. LEVOFLOXACIN. [Concomitant]
     Active Substance: LEVOFLOXACIN
     Dosage: 500 MG
     Route: 048
     Dates: start: 20180310, end: 20180322

REACTIONS (8)
  - Refractory anaemia with an excess of blasts [Not Recovered/Not Resolved]
  - Incarcerated inguinal hernia [Recovered/Resolved]
  - Post procedural haematoma [Recovered/Resolved]
  - Pneumonia [Recovered/Resolved]
  - Blood pressure increased [Recovered/Resolved]
  - Iron overload [Not Recovered/Not Resolved]
  - Post procedural haemorrhage [Recovered/Resolved]
  - Postoperative abscess [Recovered/Resolved]

NARRATIVE: CASE EVENT DATE: 20180120
